FAERS Safety Report 9721114 (Version 1)
Quarter: 2013Q4

REPORT INFORMATION
  Report Type: Spontaneous
  Country: US (occurrence: US)
  Receive Date: 20131129
  Receipt Date: 20131129
  Transmission Date: 20140711
  Serious: No
  Sender: FDA-Public Use
  Company Number: US-PFIZER INC-2013335980

PATIENT
  Age: 55 Year
  Sex: Female
  Weight: 109 kg

DRUGS (1)
  1. ADVIL [Suspect]
     Indication: COSTOCHONDRITIS
     Dosage: 400 MG, EVERY 4 TO 6 HOURS
     Dates: start: 20131101

REACTIONS (3)
  - Poor quality drug administered [Unknown]
  - Drug ineffective [Unknown]
  - Product physical issue [Unknown]
